FAERS Safety Report 4756843-8 (Version None)
Quarter: 2005Q3

REPORT INFORMATION
  Report Type: 
  Country: None (occurrence: None)
  Receive Date: 20050826
  Receipt Date: 20050208
  Transmission Date: 20060218
  Serious: Yes (Other)
  Sender: FDA-Public Use
  Company Number: USA-2005-0018797

PATIENT
  Age: 28 Year
  Sex: Male
  Weight: 95.2 kg

DRUGS (5)
  1. OXYCONTIN [Suspect]
  2. METHADONE HCL [Suspect]
  3. DIPHENHYDRAMINE HCL [Suspect]
  4. COCAINE (COCAINE) [Suspect]
  5. SOMINEX [Concomitant]

REACTIONS (1)
  - DRUG DEPENDENCE [None]
